FAERS Safety Report 22265108 (Version 1)
Quarter: 2023Q2

REPORT INFORMATION
  Report Type: Spontaneous
  Country: DE (occurrence: DE)
  Receive Date: 20230428
  Receipt Date: 20230428
  Transmission Date: 20230722
  Serious: Yes (Hospitalization, Other)
  Sender: FDA-Public Use
  Company Number: None

PATIENT
  Age: 74 Year
  Sex: Male
  Weight: 80 kg

DRUGS (2)
  1. YERVOY [Suspect]
     Active Substance: IPILIMUMAB
     Indication: Renal cell carcinoma
     Dosage: 3 MG/KG KG IPILIMUMAB, 1MG/KG KG NIVOLUMAB
     Route: 042
     Dates: start: 20221221, end: 20230306
  2. OPDIVO [Suspect]
     Active Substance: NIVOLUMAB
     Indication: Non-small cell lung cancer
     Dosage: 3 MG/KG KG IPILIMUMAB, 1MG/KG KG NIVOLUMAB
     Route: 042
     Dates: start: 20221221, end: 20230306

REACTIONS (6)
  - Visual impairment [Recovering/Resolving]
  - Epidermolysis [Recovering/Resolving]
  - Hepatitis [Recovering/Resolving]
  - Dysphagia [Recovering/Resolving]
  - Rash vesicular [Recovering/Resolving]
  - Disorientation [Recovering/Resolving]

NARRATIVE: CASE EVENT DATE: 20230326
